FAERS Safety Report 9071517 (Version 1)
Quarter: 2013Q1

REPORT INFORMATION
  Report Type: Spontaneous
  Country: US (occurrence: US)
  Receive Date: 20130206
  Receipt Date: 20130206
  Transmission Date: 20140127
  Serious: No
  Sender: FDA-Public Use
  Company Number: US-ALLERGAN-1212375US

PATIENT
  Age: 74 Year
  Sex: Female

DRUGS (3)
  1. REFRESH OPTIVE [Suspect]
     Indication: DRY EYE
     Dosage: 2 GTT, TID
     Route: 047
     Dates: start: 201208
  2. RESTASIS? [Suspect]
     Indication: DRY EYE
     Dosage: 2 GTT, BID
     Route: 047
  3. REFRESH P.M. [Concomitant]
     Indication: DRY EYE
     Dosage: UNK UNK, QHS
     Route: 047

REACTIONS (2)
  - Night blindness [Recovered/Resolved]
  - Night blindness [Recovered/Resolved]
